FAERS Safety Report 10059212 (Version 2)
Quarter: 2014Q2

REPORT INFORMATION
  Report Type: Spontaneous
  Country: US (occurrence: US)
  Receive Date: 20140404
  Receipt Date: 20140404
  Transmission Date: 20141212
  Serious: Yes (Hospitalization)
  Sender: FDA-Public Use
  Company Number: 2013SP007832

PATIENT
  Age: 75 Year
  Sex: Male
  Weight: 80.6 kg

DRUGS (13)
  1. CYTARABINE [Suspect]
     Indication: ACUTE MYELOID LEUKAEMIA
     Route: 058
     Dates: start: 20130827, end: 20131022
  2. ONDANSETRON HYDROCHLORIDE [Concomitant]
     Indication: NAUSEA
     Route: 048
     Dates: start: 20130227
  3. CRESTOR [Concomitant]
     Indication: BLOOD CHOLESTEROL INCREASED
     Route: 048
     Dates: start: 20120322
  4. ATENOLOL [Concomitant]
     Indication: HYPERTENSION
     Route: 048
     Dates: start: 20120322
  5. OMEPRAZOLE [Concomitant]
     Route: 048
     Dates: start: 20120322
  6. ASPIRIN [Concomitant]
     Indication: CORONARY ARTERY DISEASE
     Route: 048
     Dates: start: 20120322
  7. LOPERAMIDE [Concomitant]
     Indication: DIARRHOEA
     Route: 048
     Dates: start: 20120322
  8. DIAZEPAM [Concomitant]
     Indication: SLEEP DISORDER
     Dates: start: 20120322
  9. CYANOCOBALAMIN [Concomitant]
     Indication: ANAEMIA
     Route: 030
     Dates: start: 20130227
  10. ACICLOVIR [Concomitant]
     Indication: INFECTION PROPHYLAXIS
     Route: 048
     Dates: start: 20131010
  11. CEFDINIR [Concomitant]
     Indication: INFECTION PROPHYLAXIS
     Route: 048
     Dates: start: 20131015
  12. VITAMIN B [Concomitant]
     Indication: ANAEMIA
     Route: 030
     Dates: start: 20130227
  13. DESONIDE [Concomitant]
     Indication: RASH
     Route: 061
     Dates: start: 20131125

REACTIONS (7)
  - Intestinal obstruction [Recovered/Resolved]
  - Colitis [Recovered/Resolved]
  - Abdominal pain [Not Recovered/Not Resolved]
  - Abdominal pain [Not Recovered/Not Resolved]
  - Diarrhoea [Recovering/Resolving]
  - Fatigue [Unknown]
  - Dizziness [Unknown]
